FAERS Safety Report 8225189-8 (Version None)
Quarter: 2012Q1

REPORT INFORMATION
  Report Type: 
  Country: None (occurrence: None)
  Receive Date: 20120321
  Receipt Date: 20120309
  Transmission Date: 20120608
  Serious: Yes (Congenital Anomaly)
  Sender: FDA-Public Use
  Company Number: US-MERCK-1203USA01559B1

PATIENT

DRUGS (2)
  1. TRUVADA [Suspect]
     Indication: FOETAL EXPOSURE DURING PREGNANCY
     Route: 064
     Dates: start: 20120109
  2. ISENTRESS [Suspect]
     Indication: FOETAL EXPOSURE DURING PREGNANCY
     Route: 064
     Dates: start: 20120109

REACTIONS (2)
  - FOETAL EXPOSURE DURING PREGNANCY [None]
  - TRISOMY 21 [None]
